FAERS Safety Report 14527977 (Version 1)
Quarter: 2018Q1

REPORT INFORMATION
  Report Type: Report from Study
  Country: GB (occurrence: GB)
  Receive Date: 20180213
  Receipt Date: 20180213
  Transmission Date: 20180509
  Serious: Yes (Other)
  Sender: FDA-Public Use
  Company Number: GB-AMGEN-GBRSL2018017701

PATIENT
  Sex: Female

DRUGS (1)
  1. ARANESP [Suspect]
     Active Substance: DARBEPOETIN ALFA
     Indication: PRODUCT USED FOR UNKNOWN INDICATION
     Dosage: 40 MUG, UNK
     Route: 065

REACTIONS (6)
  - Vomiting [Unknown]
  - Hepatic cyst [Unknown]
  - Pancreatic cyst [Unknown]
  - Renal cyst [Unknown]
  - Malaise [Not Recovered/Not Resolved]
  - Renal impairment [Not Recovered/Not Resolved]
